FAERS Safety Report 6590368-2 (Version None)
Quarter: 2010Q1

REPORT INFORMATION
  Report Type: 
  Country: None (occurrence: None)
  Receive Date: 20100219
  Receipt Date: 20100212
  Transmission Date: 20100710
  Serious: Yes (Death, Hospitalization, Other)
  Sender: FDA-Public Use
  Company Number: FR-ROCHE-592651

PATIENT
  Sex: Male

DRUGS (13)
  1. RIVOTRIL [Suspect]
     Indication: INSOMNIA
     Route: 048
     Dates: start: 20080111, end: 20080128
  2. RIVOTRIL [Suspect]
     Route: 048
     Dates: start: 20080128, end: 20080218
  3. RIVOTRIL [Suspect]
     Route: 048
     Dates: start: 20080205, end: 20080218
  4. LEPTICUR [Suspect]
     Indication: DRUG USE FOR UNKNOWN INDICATION
     Route: 065
     Dates: start: 20080205, end: 20080218
  5. LOXAPAC [Suspect]
     Indication: DRUG USE FOR UNKNOWN INDICATION
     Dosage: DRUG: LOXAPAC 50 MG/2ML
     Route: 030
     Dates: start: 20080217, end: 20080218
  6. NOZINAN [Suspect]
     Indication: DRUG USE FOR UNKNOWN INDICATION
     Route: 065
     Dates: start: 20080213, end: 20080218
  7. MEPRONIZINE [Suspect]
     Indication: INSOMNIA
     Route: 048
     Dates: start: 20080214, end: 20080218
  8. THERALENE [Suspect]
     Indication: INSOMNIA
     Route: 048
     Dates: start: 20080214, end: 20080218
  9. CLOPIXOL [Suspect]
     Indication: DRUG USE FOR UNKNOWN INDICATION
     Route: 065
     Dates: start: 20080209, end: 20080218
  10. TERCIAN [Suspect]
     Indication: DRUG USE FOR UNKNOWN INDICATION
     Dosage: STRENGTH: 40 MG/ML
     Route: 065
     Dates: start: 20080206, end: 20080208
  11. HALDOL [Suspect]
     Indication: DRUG USE FOR UNKNOWN INDICATION
     Dosage: STRENGTH 2 MG/ML
     Route: 065
     Dates: start: 20080205
  12. HALDOL [Suspect]
     Route: 065
     Dates: end: 20080218
  13. TERALITHE [Concomitant]
     Dosage: DRUG REPORTED AS THERALITHE 400
     Route: 065
     Dates: start: 20080205, end: 20080218

REACTIONS (20)
  - AGITATION [None]
  - ALTERED STATE OF CONSCIOUSNESS [None]
  - ANXIETY [None]
  - ARRHYTHMIA [None]
  - CARDIO-RESPIRATORY ARREST [None]
  - DYSARTHRIA [None]
  - DYSKINESIA [None]
  - EXTRAPYRAMIDAL DISORDER [None]
  - GASTROINTESTINAL OBSTRUCTION [None]
  - HYPOTHERMIA [None]
  - ILEUS PARALYTIC [None]
  - INSOMNIA [None]
  - IRRITABILITY [None]
  - MALAISE [None]
  - NERVOUSNESS [None]
  - PULMONARY EMBOLISM [None]
  - PYREXIA [None]
  - RENAL DISORDER [None]
  - VISUAL ACUITY REDUCED [None]
  - VOMITING [None]
